FAERS Safety Report 4541107-8 (Version None)
Quarter: 2004Q4

REPORT INFORMATION
  Report Type: 
  Country: None (occurrence: None)
  Receive Date: 20041228
  Receipt Date: 20041214
  Transmission Date: 20050328
  Serious: Yes (Hospitalization)
  Sender: FDA-Public Use
  Company Number: 2004-UK-01349UK

PATIENT
  Sex: Female

DRUGS (10)
  1. PERSANTIN [Suspect]
     Indication: ARTHRITIS
     Dosage: 400 MG (200 MG, TWICE DAILY)
  2. PERSANTIN [Suspect]
     Indication: MYOCARDIAL ISCHAEMIA
     Dosage: 400 MG (200 MG, TWICE DAILY)
  3. ASPIRIN [Suspect]
     Indication: ARTHRITIS
     Dosage: 75 MG (ONCE DAILY)
  4. ASPIRIN [Suspect]
     Indication: MYOCARDIAL ISCHAEMIA
     Dosage: 75 MG (ONCE DAILY)
  5. DICLOFENAC (DICLOFENAC) [Suspect]
     Indication: ARTHRITIS
     Dosage: 150 MG (50 MG, THREE TIMES DAILY)
  6. DICLOFENAC (DICLOFENAC) [Suspect]
     Indication: MYOCARDIAL ISCHAEMIA
     Dosage: 150 MG (50 MG, THREE TIMES DAILY)
  7. AMLODIPINE [Concomitant]
  8. THYROXINE [Concomitant]
  9. CO-AMILOFRUSE (FRUMIL) [Concomitant]
  10. LACTULOSE [Concomitant]

REACTIONS (1)
  - IRON DEFICIENCY ANAEMIA [None]
